FAERS Safety Report 25435485 (Version 1)
Quarter: 2025Q2

REPORT INFORMATION
  Report Type: Spontaneous
  Country: NL (occurrence: NL)
  Receive Date: 20250613
  Receipt Date: 20250613
  Transmission Date: 20250716
  Serious: Yes (Other)
  Sender: MYLAN
  Company Number: None

PATIENT
  Age: 79 Year
  Sex: Male
  Weight: 101 kg

DRUGS (28)
  1. PANTOPRAZOLE [Interacting]
     Active Substance: PANTOPRAZOLE
     Indication: Dyspepsia
     Dosage: 40 MILLIGRAM, QD (40MG 1X PER DAY)
  2. PANTOPRAZOLE [Interacting]
     Active Substance: PANTOPRAZOLE
     Dosage: 40 MILLIGRAM, QD (40MG 1X PER DAY)
  3. PANTOPRAZOLE [Interacting]
     Active Substance: PANTOPRAZOLE
     Dosage: 40 MILLIGRAM, QD (40MG 1X PER DAY)
     Route: 048
  4. PANTOPRAZOLE [Interacting]
     Active Substance: PANTOPRAZOLE
     Dosage: 40 MILLIGRAM, QD (40MG 1X PER DAY)
     Route: 048
  5. PANTOPRAZOLE [Interacting]
     Active Substance: PANTOPRAZOLE
     Dosage: 40 MILLIGRAM, BID (2X PER DAY 1 TABLET)
     Dates: start: 20250430
  6. PANTOPRAZOLE [Interacting]
     Active Substance: PANTOPRAZOLE
     Dosage: 40 MILLIGRAM, BID (2X PER DAY 1 TABLET)
     Dates: start: 20250430
  7. PANTOPRAZOLE [Interacting]
     Active Substance: PANTOPRAZOLE
     Dosage: 40 MILLIGRAM, BID (2X PER DAY 1 TABLET)
     Route: 048
     Dates: start: 20250430
  8. PANTOPRAZOLE [Interacting]
     Active Substance: PANTOPRAZOLE
     Dosage: 40 MILLIGRAM, BID (2X PER DAY 1 TABLET)
     Route: 048
     Dates: start: 20250430
  9. SUCRALFATE [Interacting]
     Active Substance: SUCRALFATE
     Indication: Dyspepsia
     Dosage: 1 GRAM, BID (2X PER DAY 1 SACHET)
     Dates: start: 20250423
  10. SUCRALFATE [Interacting]
     Active Substance: SUCRALFATE
     Dosage: 1 GRAM, BID (2X PER DAY 1 SACHET)
     Route: 048
     Dates: start: 20250423
  11. SUCRALFATE [Interacting]
     Active Substance: SUCRALFATE
     Dosage: 1 GRAM, BID (2X PER DAY 1 SACHET)
     Route: 048
     Dates: start: 20250423
  12. SUCRALFATE [Interacting]
     Active Substance: SUCRALFATE
     Dosage: 1 GRAM, BID (2X PER DAY 1 SACHET)
     Dates: start: 20250423
  13. ACENOCOUMAROL [Interacting]
     Active Substance: ACENOCOUMAROL
     Indication: Product used for unknown indication
  14. ACENOCOUMAROL [Interacting]
     Active Substance: ACENOCOUMAROL
     Route: 048
  15. ACENOCOUMAROL [Interacting]
     Active Substance: ACENOCOUMAROL
     Route: 048
  16. ACENOCOUMAROL [Interacting]
     Active Substance: ACENOCOUMAROL
  17. METOPROLOL [Concomitant]
     Active Substance: METOPROLOL
  18. METOPROLOL [Concomitant]
     Active Substance: METOPROLOL
     Route: 048
  19. METOPROLOL [Concomitant]
     Active Substance: METOPROLOL
     Route: 048
  20. METOPROLOL [Concomitant]
     Active Substance: METOPROLOL
  21. EZETIMIBE [Concomitant]
     Active Substance: EZETIMIBE
  22. EZETIMIBE [Concomitant]
     Active Substance: EZETIMIBE
     Route: 048
  23. EZETIMIBE [Concomitant]
     Active Substance: EZETIMIBE
     Route: 048
  24. EZETIMIBE [Concomitant]
     Active Substance: EZETIMIBE
  25. LIPITOR [Concomitant]
     Active Substance: ATORVASTATIN CALCIUM
  26. LIPITOR [Concomitant]
     Active Substance: ATORVASTATIN CALCIUM
     Route: 048
  27. LIPITOR [Concomitant]
     Active Substance: ATORVASTATIN CALCIUM
     Route: 048
  28. LIPITOR [Concomitant]
     Active Substance: ATORVASTATIN CALCIUM

REACTIONS (6)
  - International normalised ratio increased [Recovered/Resolved]
  - Epistaxis [Recovered/Resolved]
  - Melaena [Recovered/Resolved]
  - Myocardial infarction [Recovered/Resolved]
  - Anaemia [Recovered/Resolved]
  - Drug interaction [Recovered/Resolved]

NARRATIVE: CASE EVENT DATE: 20250511
